FAERS Safety Report 7880710-4 (Version None)
Quarter: 2011Q4

REPORT INFORMATION
  Report Type: 
  Country: None (occurrence: None)
  Receive Date: 20111101
  Receipt Date: 20111028
  Transmission Date: 20120403
  Serious: Yes (Other)
  Sender: FDA-Public Use
  Company Number: IE-JNJFOC-20111009123

PATIENT
  Sex: Male

DRUGS (3)
  1. SIMPONI [Suspect]
     Route: 058
     Dates: start: 20111012
  2. FOLIC ACID [Concomitant]
  3. SIMPONI [Suspect]
     Indication: SERONEGATIVE ARTHRITIS
     Route: 058
     Dates: start: 20110126

REACTIONS (3)
  - INFLUENZA LIKE ILLNESS [None]
  - HYPOAESTHESIA ORAL [None]
  - SPEECH DISORDER [None]
